FAERS Safety Report 5258400-6 (Version None)
Quarter: 2007Q1

REPORT INFORMATION
  Report Type: 
  Country: None (occurrence: None)
  Receive Date: 20070306
  Receipt Date: 20070306
  Transmission Date: 20070707
  Serious: Yes (Hospitalization)
  Sender: FDA-Public Use
  Company Number: None

PATIENT
  Age: 67 Year
  Sex: Female
  Weight: 67 kg

DRUGS (11)
  1. ASPIRIN [Suspect]
     Indication: CORONARY ARTERY DISEASE
     Dosage: 81 MG PO DAILY
     Route: 048
  2. ATACAND [Concomitant]
  3. COENZYME Q10 [Concomitant]
  4. DARVOCET-N 100 [Concomitant]
  5. METOPROLOL SUCCINATE [Concomitant]
  6. METFORMIN HCL [Concomitant]
  7. MULTI-VITAMIN [Concomitant]
  8. MYLANTA [Concomitant]
  9. PLAVIX [Concomitant]
  10. PRANDIN [Concomitant]
  11. ALKABEL [Concomitant]

REACTIONS (3)
  - ANAEMIA [None]
  - DRUG INEFFECTIVE [None]
  - DUODENAL ULCER [None]
